FAERS Safety Report 18050965 (Version 1)
Quarter: 2020Q3

REPORT INFORMATION
  Report Type: Spontaneous
  Country: DE (occurrence: DE)
  Receive Date: 20200721
  Receipt Date: 20200721
  Transmission Date: 20201103
  Serious: Yes (Hospitalization, Other)
  Sender: FDA-Public Use
  Company Number: DE-MYLANLABS-2020M1064573

PATIENT
  Sex: Male

DRUGS (33)
  1. AMLODIPINE [Suspect]
     Active Substance: AMLODIPINE BESYLATE
     Indication: HYPERTENSION
     Dosage: 5 MG, BID
     Route: 065
  2. VALSARTAN. [Suspect]
     Active Substance: VALSARTAN
     Indication: PRODUCT USED FOR UNKNOWN INDICATION
     Dosage: 80 MG, BID
     Route: 065
  3. VALSARTAN. [Suspect]
     Active Substance: VALSARTAN
     Dosage: UNK UNK, QD
     Route: 065
     Dates: start: 2013, end: 2013
  4. VALSARTAN. [Suspect]
     Active Substance: VALSARTAN
     Indication: HYPERTENSION
     Dosage: UNK UNK, QD
     Route: 065
     Dates: start: 2013, end: 2013
  5. CLOPIDOGREL [Concomitant]
     Active Substance: CLOPIDOGREL BISULFATE
     Dosage: 75 MG, QD
     Route: 065
  6. DIURETIC                           /00022001/ [Concomitant]
     Active Substance: HYDROCHLOROTHIAZIDE
     Indication: PRODUCT USED FOR UNKNOWN INDICATION
     Dosage: (1?0?0)
     Route: 065
  7. NEBIVOLOL. [Concomitant]
     Active Substance: NEBIVOLOL
     Indication: PRODUCT USED FOR UNKNOWN INDICATION
     Dosage: UNK
     Route: 065
     Dates: end: 201112
  8. BISOPROLOL [Concomitant]
     Active Substance: BISOPROLOL
     Indication: HYPERTENSION
     Dosage: 5 MG, QD
     Route: 065
  9. HYDROCHLOROTHIAZIDE. [Suspect]
     Active Substance: HYDROCHLOROTHIAZIDE
     Indication: PRODUCT USED FOR UNKNOWN INDICATION
     Dosage: UNK
     Route: 065
  10. PANTOZOL [Concomitant]
     Active Substance: PANTOPRAZOLE SODIUM
     Dosage: 20 MG, QD
     Route: 065
  11. TOREM                              /01036501/ [Concomitant]
     Active Substance: TORSEMIDE
     Dosage: UNK, BID (1/2 MG)
     Dates: start: 1998, end: 2014
  12. BISOPROLOL [Concomitant]
     Active Substance: BISOPROLOL
     Dosage: UNK, BID (1/2 5 MG)
     Route: 065
  13. TOREM                              /01036501/ [Concomitant]
     Active Substance: TORSEMIDE
     Dosage: 5 MILLIGRAM, QD
     Dates: start: 2014
  14. METOPROLOL. [Suspect]
     Active Substance: METOPROLOL
     Indication: ESSENTIAL TREMOR
     Dosage: UNK
     Route: 065
     Dates: start: 201203, end: 201203
  15. VALSARTAN. [Suspect]
     Active Substance: VALSARTAN
     Indication: HYPERTENSION
     Dosage: 0.5 DF, BID
     Route: 065
     Dates: start: 20140710, end: 20181217
  16. VALSARTAN. [Suspect]
     Active Substance: VALSARTAN
     Dosage: 0.5 DF, BID
     Route: 065
     Dates: start: 20120313, end: 20180709
  17. PROPRANOLOL [Suspect]
     Active Substance: PROPRANOLOL HYDROCHLORIDE
     Indication: ESSENTIAL TREMOR
     Dosage: UNK
     Route: 065
     Dates: start: 201203, end: 201203
  18. PANTOZOL [Concomitant]
     Active Substance: PANTOPRAZOLE SODIUM
     Indication: ABDOMINAL DISCOMFORT
     Dosage: 20 MG, QD
     Route: 065
     Dates: start: 2014
  19. KERLONE [Concomitant]
     Active Substance: BETAXOLOL HYDROCHLORIDE
     Indication: PRODUCT USED FOR UNKNOWN INDICATION
     Dosage: 20 MG, QD
     Route: 065
  20. TORASEMID [Concomitant]
     Active Substance: TORSEMIDE
     Indication: HYPERTENSION
     Dosage: UNK, BID (1/2 MG)
     Route: 065
     Dates: start: 1998, end: 2014
  21. TORASEMID [Concomitant]
     Active Substance: TORSEMIDE
     Dosage: 5 MG, QD
     Route: 065
     Dates: start: 2014
  22. MOXONIDINE [Suspect]
     Active Substance: MOXONIDINE
     Indication: PRODUCT USED FOR UNKNOWN INDICATION
     Dosage: UNK
     Route: 065
  23. CAPTOPRIL. [Suspect]
     Active Substance: CAPTOPRIL
     Indication: HYPERTENSION
     Dosage: 50 MG, BID
     Route: 065
     Dates: start: 201112
  24. BETABLOCK [Concomitant]
     Indication: PRODUCT USED FOR UNKNOWN INDICATION
     Dosage: UNK
     Route: 065
  25. IBUPROFEN. [Concomitant]
     Active Substance: IBUPROFEN
     Indication: INTERVERTEBRAL DISC PROTRUSION
     Dosage: 600 MG
     Route: 065
  26. MUNOBAL [Concomitant]
     Active Substance: FELODIPINE
     Indication: HYPERTENSION
     Dosage: 5 MG, BID
     Route: 065
  27. KERLONE [Concomitant]
     Active Substance: BETAXOLOL HYDROCHLORIDE
     Dosage: 10 MG, QD
     Route: 065
     Dates: end: 201112
  28. VERAPAMIL [Suspect]
     Active Substance: VERAPAMIL HYDROCHLORIDE
     Indication: PRODUCT USED FOR UNKNOWN INDICATION
     Dosage: UNK
     Route: 065
  29. CLOPIDOGREL [Concomitant]
     Active Substance: CLOPIDOGREL BISULFATE
     Indication: CORONARY ARTERY DISEASE
     Dosage: 75 MG, QD
     Route: 065
     Dates: start: 2015
  30. TOREM                              /01036501/ [Concomitant]
     Active Substance: TORSEMIDE
     Indication: HYPERTENSION
     Dosage: 5 MG, QD
     Route: 065
     Dates: start: 2018, end: 2018
  31. ACERCOMP [Concomitant]
     Indication: HYPERTENSION
     Dosage: (0?0?1)
     Route: 065
     Dates: start: 1998
  32. VALSARTAN. [Suspect]
     Active Substance: VALSARTAN
     Dosage: 80 MG, QID
     Route: 065
  33. IBUPROFEN. [Concomitant]
     Active Substance: IBUPROFEN
     Dosage: 600 MG
     Route: 065
     Dates: start: 2018, end: 2018

REACTIONS (36)
  - Sleep apnoea syndrome [Unknown]
  - Memory impairment [Recovering/Resolving]
  - Actinic keratosis [Unknown]
  - Mental disorder [Not Recovered/Not Resolved]
  - Melanocytic naevus [Unknown]
  - Orthostatic intolerance [Recovered/Resolved]
  - Oesophagitis [Unknown]
  - Drug intolerance [Unknown]
  - Facet joint syndrome [Unknown]
  - Cognitive disorder [Recovered/Resolved]
  - Dry mouth [Unknown]
  - Hernia [Unknown]
  - Solar lentigo [Unknown]
  - Dyspnoea [Unknown]
  - Breathing-related sleep disorder [Unknown]
  - Peripheral venous disease [Unknown]
  - Neuralgia [Unknown]
  - Osteoarthritis [Unknown]
  - Fatigue [Recovered/Resolved]
  - Factor VII deficiency [Unknown]
  - Abdominal discomfort [Unknown]
  - Vertigo [Recovered/Resolved]
  - Quality of life decreased [Unknown]
  - Abdominal pain [Unknown]
  - Nausea [Recovered/Resolved]
  - Inflammation [Unknown]
  - Skin erosion [Unknown]
  - Headache [Unknown]
  - Leukopenia [Unknown]
  - Head discomfort [Unknown]
  - Migraine with aura [Recovered/Resolved]
  - Diverticulum [Unknown]
  - Merycism [Unknown]
  - Wound [Unknown]
  - Helicobacter test positive [Unknown]
  - Dizziness [Unknown]

NARRATIVE: CASE EVENT DATE: 201202
